FAERS Safety Report 5549408-1 (Version None)
Quarter: 2007Q4

REPORT INFORMATION
  Report Type: 
  Country: None (occurrence: None)
  Receive Date: 20071212
  Receipt Date: 20070516
  Transmission Date: 20080405
  Serious: No
  Sender: FDA-Public Use
  Company Number: US-AMGEN-KDL213010

PATIENT
  Sex: Female
  Weight: 81.7 kg

DRUGS (7)
  1. ENBREL [Suspect]
     Indication: RHEUMATOID ARTHRITIS
     Route: 058
     Dates: start: 20061212, end: 20070306
  2. REQUIP [Concomitant]
  3. ZOLOFT [Concomitant]
  4. CELEBREX [Concomitant]
  5. TOPRAL [Concomitant]
  6. PROTONIX [Concomitant]
  7. LORTAB [Concomitant]

REACTIONS (4)
  - DYSPNOEA [None]
  - INJECTION SITE RASH [None]
  - INJECTION SITE REACTION [None]
  - NAUSEA [None]
